FAERS Safety Report 17584660 (Version 1)
Quarter: 2020Q1

REPORT INFORMATION
  Report Type: Spontaneous
  Country: US (occurrence: US)
  Receive Date: 20200326
  Receipt Date: 20200326
  Transmission Date: 20200409
  Serious: Yes (Other)
  Sender: FDA-Public Use
  Company Number: US-PFIZER INC-2020124976

PATIENT
  Age: 65 Year
  Sex: Male

DRUGS (1)
  1. GABAPENTIN. [Suspect]
     Active Substance: GABAPENTIN
     Dosage: 6600 MG, UNK

REACTIONS (4)
  - Hepatic cirrhosis [Unknown]
  - Hepatic failure [Unknown]
  - Dysuria [Unknown]
  - Burning sensation [Unknown]
